FAERS Safety Report 5930648-4 (Version None)
Quarter: 2008Q4

REPORT INFORMATION
  Report Type: 
  Country: None (occurrence: None)
  Receive Date: 20081024
  Receipt Date: 20081024
  Transmission Date: 20090506
  Serious: Yes (Hospitalization)
  Sender: FDA-Public Use
  Company Number: None

PATIENT
  Age: 67 Year
  Sex: Female
  Weight: 67 kg

DRUGS (1)
  1. PROCARDIA XL [Suspect]
     Indication: HYPERTENSION
     Dosage: 240 MG DAILY PO
     Route: 048
     Dates: start: 20071212, end: 20071212

REACTIONS (5)
  - ATRIOVENTRICULAR BLOCK [None]
  - HAEMODIALYSIS [None]
  - MEDICATION ERROR [None]
  - OVERDOSE [None]
  - RENAL FAILURE [None]
